FAERS Safety Report 8056650-7 (Version None)
Quarter: 2012Q1

REPORT INFORMATION
  Report Type: 
  Country: None (occurrence: None)
  Receive Date: 20120119
  Receipt Date: 20120113
  Transmission Date: 20120608
  Serious: Yes (Other)
  Sender: FDA-Public Use
  Company Number: PL-ABBOTT-11P-129-0880282-00

PATIENT
  Age: 9 Month
  Sex: Female

DRUGS (2)
  1. VALPROIC ACID SYRUP [Suspect]
     Indication: PRODUCT USED FOR UNKNOWN INDICATION
     Dosage: INCREASED TO 64MG/KG PER DAY
  2. VALPROIC ACID SYRUP [Suspect]

REACTIONS (2)
  - TOXICITY TO VARIOUS AGENTS [None]
  - PANCYTOPENIA [None]
